FAERS Safety Report 16780069 (Version 1)
Quarter: 2019Q3

REPORT INFORMATION
  Report Type: Spontaneous
  Country: FR (occurrence: FR)
  Receive Date: 20190906
  Receipt Date: 20190906
  Transmission Date: 20191005
  Serious: Yes (Hospitalization)
  Sender: FDA-Public Use
  Company Number: FR-TEVA-2019-FR-1101726

PATIENT
  Age: 75 Year
  Sex: Male
  Weight: 78 kg

DRUGS (11)
  1. TAHOR [Concomitant]
     Active Substance: ATORVASTATIN CALCIUM
  2. UROREC [Concomitant]
     Active Substance: SILODOSIN
  3. PERMIXON [Concomitant]
     Active Substance: HERBALS\SAW PALMETTO
  4. HYDROCHLOROTHIAZIDE. [Concomitant]
     Active Substance: HYDROCHLOROTHIAZIDE
  5. VESICARE [Concomitant]
     Active Substance: SOLIFENACIN SUCCINATE
  6. VALACICLOVIR [Suspect]
     Active Substance: VALACYCLOVIR HYDROCHLORIDE
     Indication: HERPES ZOSTER
     Dosage: 3 GRAM, 1 DAYS
     Route: 048
     Dates: start: 20190509, end: 20190521
  7. JANUVIA [Concomitant]
     Active Substance: SITAGLIPTIN PHOSPHATE
  8. METFORMINE [Concomitant]
     Active Substance: METFORMIN HYDROCHLORIDE
  9. KARDEGIC [Concomitant]
     Active Substance: ASPIRIN DL-LYSINE
  10. LOSARTAN POTASSIQUE [Concomitant]
     Active Substance: LOSARTAN POTASSIUM
  11. SOTALOL (CHLORHYDRATE DE) [Concomitant]
     Active Substance: SOTALOL

REACTIONS (2)
  - Encephalopathy [Recovering/Resolving]
  - Mutism [Recovered/Resolved]

NARRATIVE: CASE EVENT DATE: 20190514
